FAERS Safety Report 8085196-5 (Version None)
Quarter: 2012Q1

REPORT INFORMATION
  Report Type: 
  Country: None (occurrence: None)
  Receive Date: 20120128
  Receipt Date: 20110328
  Transmission Date: 20120608
  Serious: No
  Sender: FDA-Public Use
  Company Number: US-ABBOTT-11P-163-0714900-00

PATIENT
  Age: 72 Year
  Sex: Female

DRUGS (11)
  1. CALCIUM [Concomitant]
     Indication: PRODUCT USED FOR UNKNOWN INDICATION
  2. LOSARTAN POTASSIUM [Concomitant]
     Indication: HYPERTENSION
  3. METFFORMIN HYDROCHLORIDE [Concomitant]
     Indication: DIABETES MELLITUS
  4. MULTI-VITAMIN [Concomitant]
     Indication: PRODUCT USED FOR UNKNOWN INDICATION
  5. ASPIRIN [Concomitant]
     Indication: PRODUCT USED FOR UNKNOWN INDICATION
  6. NORTRIPTYLINE HCL [Concomitant]
     Indication: PAIN
     Dosage: AT BEDTIME
  7. NORTRIPTYLINE HCL [Concomitant]
     Indication: INSOMNIA
  8. PAXIL [Concomitant]
     Indication: FIBROMYALGIA
  9. HUMIRA [Suspect]
     Indication: PSORIASIS
     Dates: start: 20101001
  10. LOVAZA [Concomitant]
     Indication: PRODUCT USED FOR UNKNOWN INDICATION
  11. SIMVASTATIN [Concomitant]
     Indication: BLOOD CHOLESTEROL INCREASED

REACTIONS (1)
  - INJECTION SITE PRURITUS [None]
